FAERS Safety Report 8521975-5 (Version None)
Quarter: 2012Q3

REPORT INFORMATION
  Report Type: 
  Country: None (occurrence: None)
  Receive Date: 20120719
  Receipt Date: 20120710
  Transmission Date: 20120928
  Serious: Yes (Other)
  Sender: FDA-Public Use
  Company Number: US-CELGENEUS-163-21880-12022284

PATIENT
  Sex: Male

DRUGS (2)
  1. REVLIMID [Suspect]
     Indication: MULTIPLE MYELOMA
     Dosage: 10 MILLIGRAM
     Route: 048
     Dates: start: 20111212, end: 20120110
  2. ZOMETA [Concomitant]
     Route: 065

REACTIONS (3)
  - FULL BLOOD COUNT DECREASED [None]
  - MALAISE [None]
  - OSTEONECROSIS [None]
